FAERS Safety Report 12710052 (Version 2)
Quarter: 2016Q3

REPORT INFORMATION
  Report Type: Report from Study
  Country: KR (occurrence: KR)
  Receive Date: 20160902
  Receipt Date: 20160902
  Transmission Date: 20161109
  Serious: Yes (Hospitalization)
  Sender: FDA-Public Use
  Company Number: KR-ROCHE-1814056

PATIENT
  Age: 38 Year
  Sex: Male
  Weight: 90 kg

DRUGS (9)
  1. BENDAMUSTINE [Suspect]
     Active Substance: BENDAMUSTINE
     Indication: B-CELL LYMPHOMA
     Dosage: DATE OF LAST DOSE PRIOR TO SAE: 02/AUG/2016, 29/AUG/2016
     Route: 042
     Dates: start: 20160801
  2. DENOGAN [Concomitant]
     Active Substance: PROPACETAMOL HYDROCHLORIDE
     Route: 065
     Dates: start: 20160830
  3. DENOGAN [Concomitant]
     Active Substance: PROPACETAMOL HYDROCHLORIDE
     Route: 065
     Dates: start: 20160812, end: 20160812
  4. TACENOL ER [Concomitant]
     Route: 065
     Dates: start: 20160813, end: 20160814
  5. RITUXIMAB [Suspect]
     Active Substance: RITUXIMAB
     Indication: B-CELL LYMPHOMA
     Dosage: LAST DOSE PRIOR TO EVENT ON 29/AUG/2016
     Route: 058
     Dates: start: 20160801
  6. CEFAMEZIN [Concomitant]
     Active Substance: CEFAZOLIN
     Route: 065
     Dates: start: 20160830
  7. CEFAMEZIN [Concomitant]
     Active Substance: CEFAZOLIN
     Route: 065
     Dates: start: 20160812, end: 20160815
  8. RITUXIMAB [Suspect]
     Active Substance: RITUXIMAB
     Indication: B-CELL LYMPHOMA
     Dosage: DATE OF LAST DOSE PRIOR TO SAE: 01/AUG/2016
     Route: 042
     Dates: start: 20160801
  9. TRIDOL [Concomitant]
     Active Substance: TRAMADOL HYDROCHLORIDE
     Route: 065
     Dates: start: 20160812, end: 20160812

REACTIONS (3)
  - Pyrexia [Recovered/Resolved]
  - Viral infection [Recovered/Resolved]
  - Pyrexia [Not Recovered/Not Resolved]

NARRATIVE: CASE EVENT DATE: 20160811
